FAERS Safety Report 4434285-2 (Version None)
Quarter: 2004Q3

REPORT INFORMATION
  Report Type: 
  Country: None (occurrence: None)
  Receive Date: 20040825
  Receipt Date: 20040812
  Transmission Date: 20050211
  Serious: Yes (Life-Threatening)
  Sender: FDA-Public Use
  Company Number: STA-AE-04-MTX-363

PATIENT
  Age: 67 Year
  Sex: Female

DRUGS (5)
  1. METHOTREXATE [Suspect]
     Indication: RHEUMATOID ARTHRITIS
     Dosage: 15 MG 1 X PER 1 WK, ORAL
     Route: 048
  2. REMICADE [Suspect]
     Indication: RHEUMATOID ARTHRITIS
     Dosage: 200 MG, INTRAVENOUS
     Route: 042
     Dates: start: 20040302, end: 20040414
  3. FOLIC ACID [Concomitant]
  4. PREDNISOLONE [Concomitant]
  5. RISEDRONATE (RISEDRONATE) [Concomitant]

REACTIONS (3)
  - METASTASES TO LYMPH NODES [None]
  - PAPILLARY THYROID CANCER [None]
  - THYROID CANCER METASTATIC [None]
